FAERS Safety Report 24980448 (Version 2)
Quarter: 2025Q1

REPORT INFORMATION
  Report Type: Spontaneous
  Country: CO (occurrence: CO)
  Receive Date: 20250218
  Receipt Date: 20250228
  Transmission Date: 20250409
  Serious: Yes (Other)
  Sender: REGENERON
  Company Number: CO-BAYER-2025A020456

PATIENT
  Age: 60 Year
  Sex: Female

DRUGS (2)
  1. EYLEA [Suspect]
     Active Substance: AFLIBERCEPT
     Indication: Retinal vein occlusion
     Dates: start: 20240821
  2. EYLEA [Suspect]
     Active Substance: AFLIBERCEPT
     Indication: Macular oedema

REACTIONS (10)
  - Retinal haemorrhage [Unknown]
  - Vitreous haemorrhage [Unknown]
  - Choroidal detachment [Unknown]
  - Endophthalmitis [Recovering/Resolving]
  - Cataract [Unknown]
  - Iridocyclitis [Unknown]
  - Visual impairment [Unknown]
  - Visual acuity reduced [Unknown]
  - Vitreous floaters [Unknown]
  - Vision blurred [Unknown]

NARRATIVE: CASE EVENT DATE: 20240824
